FAERS Safety Report 9908645 (Version 1)
Quarter: 2014Q1

REPORT INFORMATION
  Report Type: Spontaneous
  Country: US (occurrence: None)
  Receive Date: 20140214
  Receipt Date: 20140214
  Transmission Date: 20141002
  Serious: Yes (Hospitalization)
  Sender: FDA-Public Use
  Company Number: None

PATIENT
  Age: 59 Year
  Sex: Male
  Weight: 79 kg

DRUGS (2)
  1. WARFARIN [Suspect]
     Indication: AORTIC VALVE REPLACEMENT
     Dosage: CHRONIC ?2MG SSMTTHF PO
     Route: 048
  2. ASPIRIN [Suspect]
     Indication: AORTIC VALVE REPLACEMENT
     Dosage: CHRONIC
     Route: 048

REACTIONS (4)
  - Anaemia [None]
  - Gastritis erosive [None]
  - Blood creatine increased [None]
  - Upper gastrointestinal haemorrhage [None]
